FAERS Safety Report 9171503 (Version 1)
Quarter: 2013Q1

REPORT INFORMATION
  Report Type: Report from Study
  Country: JP (occurrence: JP)
  Receive Date: 20130319
  Receipt Date: 20130319
  Transmission Date: 20140127
  Serious: Yes (Hospitalization, Other)
  Sender: FDA-Public Use
  Company Number: JP-ROCHE-1200342

PATIENT
  Age: 69 Year
  Sex: Male
  Weight: 59 kg

DRUGS (2)
  1. PEG-INTERFERON ALFA 2A [Suspect]
     Indication: CHRONIC HEPATITIS C
     Route: 058
     Dates: start: 20100702, end: 20101015
  2. RIBAVIRIN [Suspect]
     Indication: CHRONIC HEPATITIS C
     Route: 048
     Dates: start: 20100702, end: 20101015

REACTIONS (4)
  - Lung neoplasm malignant [Recovering/Resolving]
  - Aspartate aminotransferase increased [Recovering/Resolving]
  - Skin disorder [Not Recovered/Not Resolved]
  - Alanine aminotransferase increased [Recovering/Resolving]
